FAERS Safety Report 4410586-9 (Version None)
Quarter: 2004Q3

REPORT INFORMATION
  Report Type: 
  Country: None (occurrence: None)
  Receive Date: 20040726
  Receipt Date: 20040712
  Transmission Date: 20050211
  Serious: Yes (Other)
  Sender: FDA-Public Use
  Company Number: US-JNJFOC-20040703508

PATIENT
  Age: 45 Year
  Sex: Female
  Weight: 54.4316 kg

DRUGS (4)
  1. TOPAMAX [Suspect]
     Indication: MIGRAINE
     Dosage: 125 MG, 2 IN 1 DAY ORAL
     Route: 048
     Dates: start: 19990101
  2. MAXALT [Concomitant]
  3. DARVOCET [Concomitant]
  4. TRANXENE [Concomitant]

REACTIONS (6)
  - ARTHRALGIA [None]
  - AURA [None]
  - HEADACHE [None]
  - MIGRAINE [None]
  - NAUSEA [None]
  - NECK PAIN [None]
